FAERS Safety Report 21187699 (Version 1)
Quarter: 2022Q3

REPORT INFORMATION
  Report Type: Spontaneous
  Country: US (occurrence: US)
  Receive Date: 20220809
  Receipt Date: 20220809
  Transmission Date: 20221026
  Serious: No
  Sender: FDA-Public Use
  Company Number: US-BRISTOL-MYERS SQUIBB COMPANY-2022-065414

PATIENT
  Sex: Male

DRUGS (1)
  1. ABRAXANE [Suspect]
     Active Substance: PACLITAXEL
     Indication: Pancreatic carcinoma
     Dosage: FREQ : DAY ONE ON A 28 DAY CYCLE
     Route: 042
     Dates: start: 202204

REACTIONS (3)
  - Suspected COVID-19 [Unknown]
  - Night sweats [Unknown]
  - Influenza [Unknown]

NARRATIVE: CASE EVENT DATE: 20220601
